FAERS Safety Report 14826623 (Version 6)
Quarter: 2018Q3

REPORT INFORMATION
  Report Type: Spontaneous
  Country: RO (occurrence: RO)
  Receive Date: 20180430
  Receipt Date: 20180713
  Transmission Date: 20181010
  Serious: Yes (Other)
  Sender: FDA-Public Use
  Company Number: RO-TORRENT-00000055

PATIENT
  Age: 46 Year
  Sex: Male

DRUGS (6)
  1. VALPROIC ACID. [Suspect]
     Active Substance: VALPROIC ACID
     Indication: SCHIZOPHRENIA
     Dosage: UNKNOWN
     Dates: start: 2014
  2. HALOPERIDOL. [Suspect]
     Active Substance: HALOPERIDOL
     Indication: SCHIZOPHRENIA
     Dosage: UNKNOWN
  3. ARIPIPRAZOLE. [Suspect]
     Active Substance: ARIPIPRAZOLE
     Indication: SCHIZOPHRENIA
     Dosage: UNKNOWN
     Route: 030
  4. OLANZAPINE. [Suspect]
     Active Substance: OLANZAPINE
     Indication: SCHIZOPHRENIA
     Dosage: UNKNOWN
     Dates: end: 2014
  5. RISPERIDONE. [Suspect]
     Active Substance: RISPERIDONE
     Indication: SCHIZOPHRENIA
     Dosage: UNK
  6. PALIPERIDONE. [Concomitant]
     Active Substance: PALIPERIDONE
     Indication: SCHIZOPHRENIA
     Dosage: UNKNOWN

REACTIONS (11)
  - Drug ineffective [Unknown]
  - Tremor [Unknown]
  - Suicide attempt [Unknown]
  - Dyslipidaemia [Unknown]
  - Hepatic steatosis [Unknown]
  - Drug intolerance [Unknown]
  - Parkinsonism [Unknown]
  - Therapeutic response decreased [Unknown]
  - Condition aggravated [Unknown]
  - Weight increased [Unknown]
  - Treatment noncompliance [Unknown]

NARRATIVE: CASE EVENT DATE: 2006
